FAERS Safety Report 17361212 (Version 1)
Quarter: 2020Q1

REPORT INFORMATION
  Report Type: Spontaneous
  Country: DK (occurrence: DK)
  Receive Date: 20200203
  Receipt Date: 20200203
  Transmission Date: 20200409
  Serious: Yes (Other)
  Sender: FDA-Public Use
  Company Number: DK-GLAXOSMITHKLINE-DK2019EME239467

PATIENT

DRUGS (2)
  1. NEOTIGASON [Suspect]
     Active Substance: ACITRETIN
     Indication: SKIN DISORDER
     Dosage: UNK
     Route: 048
     Dates: start: 19980620
  2. SANDIMMUN NEORAL [Suspect]
     Active Substance: CYCLOSPORINE
     Indication: SKIN DISORDER
     Dosage: UNK
     Route: 048
     Dates: start: 20010827

REACTIONS (7)
  - Taste disorder [Unknown]
  - Alopecia [Unknown]
  - Gingival bleeding [Unknown]
  - Hairy cell leukaemia [Unknown]
  - Mucosal haemorrhage [Unknown]
  - Fatigue [Unknown]
  - Epistaxis [Unknown]
